FAERS Safety Report 12889711 (Version 2)
Quarter: 2016Q4

REPORT INFORMATION
  Report Type: Spontaneous
  Country: BE (occurrence: BE)
  Receive Date: 20161027
  Receipt Date: 20161122
  Transmission Date: 20170207
  Serious: Yes (Hospitalization)
  Sender: FDA-Public Use
  Company Number: BE-TAKEDA-2016TUS019025

PATIENT
  Age: 22 Year
  Sex: Female
  Weight: 50 kg

DRUGS (3)
  1. PENTASOL [Concomitant]
     Dosage: UNK
     Dates: start: 2014
  2. ENTYVIO [Suspect]
     Active Substance: VEDOLIZUMAB
     Indication: CROHN^S DISEASE
     Dosage: UNK
     Route: 042
     Dates: start: 20160705
  3. IMURAN [Concomitant]
     Active Substance: AZATHIOPRINE
     Dosage: 100 MG, UNK
     Dates: start: 2014

REACTIONS (3)
  - Diarrhoea haemorrhagic [Recovering/Resolving]
  - Fatigue [Unknown]
  - Drug ineffective [Unknown]
